FAERS Safety Report 12460689 (Version 2)
Quarter: 2016Q2

REPORT INFORMATION
  Report Type: Spontaneous
  Country: JP (occurrence: JP)
  Receive Date: 20160613
  Receipt Date: 20160623
  Transmission Date: 20160815
  Serious: Yes (Other)
  Sender: FDA-Public Use
  Company Number: JP-PFIZER INC-2016290190

PATIENT
  Age: 6 Year
  Sex: Female

DRUGS (1)
  1. IRINOTECAN HCL [Suspect]
     Active Substance: IRINOTECAN HYDROCHLORIDE
     Indication: HEPATOBLASTOMA
     Dosage: 20 MG/M2, CYCLIC, 5 CONSECUTIVE DAYS, TOTAL OF 2 CYCLES
     Route: 041

REACTIONS (1)
  - Bone marrow failure [Unknown]
